FAERS Safety Report 6592600-8 (Version None)
Quarter: 2010Q1

REPORT INFORMATION
  Report Type: 
  Country: None (occurrence: None)
  Receive Date: 20100221
  Receipt Date: 20091030
  Transmission Date: 20100710
  Serious: Yes (Other)
  Sender: FDA-Public Use
  Company Number: US-ALLERGAN-0915096US

PATIENT
  Sex: Female

DRUGS (1)
  1. BOTOX [Suspect]
     Indication: FACIAL SPASM
     Dosage: 100 UNITS, SINGLE
     Route: 030
     Dates: start: 20091015, end: 20091015

REACTIONS (2)
  - DYSARTHRIA [None]
  - DYSPHAGIA [None]
